FAERS Safety Report 8262902-8 (Version None)
Quarter: 2012Q2

REPORT INFORMATION
  Report Type: 
  Country: None (occurrence: None)
  Receive Date: 20120405
  Receipt Date: 20120330
  Transmission Date: 20120825
  Serious: Yes (Other)
  Sender: FDA-Public Use
  Company Number: AT-GLAXOSMITHKLINE-B0765718A

PATIENT
  Age: 54 Year
  Sex: Female

DRUGS (2)
  1. REQUIP [Suspect]
     Indication: PARKINSON'S DISEASE
     Dosage: 18MG PER DAY
     Route: 065
     Dates: start: 20090901
  2. MADOPAR [Concomitant]
     Route: 065

REACTIONS (10)
  - OEDEMA PERIPHERAL [None]
  - BALANCE DISORDER [None]
  - STEREOTYPY [None]
  - OBSESSIVE-COMPULSIVE DISORDER [None]
  - ORTHOSTATIC INTOLERANCE [None]
  - INCREASED APPETITE [None]
  - IRRITABILITY [None]
  - WEIGHT INCREASED [None]
  - HALLUCINATION [None]
  - FLATULENCE [None]
